FAERS Safety Report 11528059 (Version 1)
Quarter: 2015Q3

REPORT INFORMATION
  Report Type: Spontaneous
  Country: DE (occurrence: DE)
  Receive Date: 20150921
  Receipt Date: 20150921
  Transmission Date: 20151125
  Serious: Yes (Hospitalization)
  Sender: FDA-Public Use
  Company Number: DE-ACTELION-A-CH2015-123684

PATIENT
  Age: 68 Year
  Sex: Male
  Weight: 60 kg

DRUGS (1)
  1. OPSUMIT [Suspect]
     Active Substance: MACITENTAN
     Indication: PULMONARY ARTERIAL HYPERTENSION
     Dosage: 10 MG, QD
     Route: 048
     Dates: start: 20150328, end: 20150407

REACTIONS (11)
  - Hypersensitivity [Recovered/Resolved]
  - Haemoglobin decreased [Unknown]
  - Erythema [Recovered/Resolved]
  - Staphylococcus test positive [Unknown]
  - Gamma-glutamyltransferase increased [Unknown]
  - Perivascular dermatitis [Recovered/Resolved]
  - Oedema peripheral [Recovered/Resolved]
  - Eosinophil count increased [Recovered/Resolved]
  - Blood alkaline phosphatase increased [Unknown]
  - Rash [Recovered/Resolved]
  - Lividity [Recovered/Resolved]
